FAERS Safety Report 15191287 (Version 1)
Quarter: 2018Q3

REPORT INFORMATION
  Report Type: Spontaneous
  Country: US (occurrence: US)
  Receive Date: 20180724
  Receipt Date: 20180724
  Transmission Date: 20181010
  Serious: No
  Sender: FDA-Public Use
  Company Number: US-AMGEN-USASP2018074496

PATIENT
  Age: 53 Year
  Sex: Male

DRUGS (3)
  1. KYPROLIS [Suspect]
     Active Substance: CARFILZOMIB
     Dosage: 44 MG, UNK
     Route: 065
     Dates: start: 20180522
  2. KYPROLIS [Suspect]
     Active Substance: CARFILZOMIB
     Indication: PLASMA CELL MYELOMA
     Dosage: 45.6 MG, UNK
     Route: 065
     Dates: start: 20180521, end: 20180521
  3. KYPROLIS [Suspect]
     Active Substance: CARFILZOMIB
     Dosage: 59.4 MG, UNK
     Route: 065
     Dates: start: 20180529

REACTIONS (1)
  - Weight decreased [Unknown]

NARRATIVE: CASE EVENT DATE: 201805
